FAERS Safety Report 21879026 (Version 1)
Quarter: 2023Q1

REPORT INFORMATION
  Report Type: Spontaneous
  Country: US (occurrence: US)
  Receive Date: 20230118
  Receipt Date: 20230118
  Transmission Date: 20230418
  Serious: Yes (Death, Other)
  Sender: FDA-Public Use
  Company Number: US-AMGEN-USASP2023005591

PATIENT

DRUGS (6)
  1. RITUXIMAB [Suspect]
     Active Substance: RITUXIMAB
     Indication: Diffuse large B-cell lymphoma
     Dosage: 375 MILLIGRAM/SQ M
     Route: 065
  2. METHOTREXATE [Concomitant]
     Active Substance: METHOTREXATE
     Dosage: 3.5 GRAM/SQ M
  3. CYTARABINE [Concomitant]
     Active Substance: CYTARABINE
     Dosage: 2 GRAM/SQ M , Q12H
  4. THIOTEPA [Concomitant]
     Active Substance: THIOTEPA
     Dosage: 30 MILLIGRAM/SQ M
  5. THIOTEPA [Concomitant]
     Active Substance: THIOTEPA
     Dosage: 30 MILLIGRAM/KG
  6. CARMUSTINE [Concomitant]
     Active Substance: CARMUSTINE
     Dosage: 400 MILLIGRAM/SQ M

REACTIONS (9)
  - Death [Fatal]
  - Diffuse large B-cell lymphoma [Unknown]
  - Thrombophlebitis septic [Fatal]
  - Cardiac arrest [Fatal]
  - Leukoencephalopathy [Unknown]
  - Febrile neutropenia [Fatal]
  - Pneumonia fungal [Fatal]
  - Blood stem cell harvest failure [Unknown]
  - Toxicity to various agents [Unknown]
